FAERS Safety Report 6208191-7 (Version None)
Quarter: 2009Q2

REPORT INFORMATION
  Report Type: 
  Country: None (occurrence: None)
  Receive Date: 20090529
  Receipt Date: 20090519
  Transmission Date: 20091009
  Serious: Yes (Other)
  Sender: FDA-Public Use
  Company Number: PHHY2009ZA17481

PATIENT
  Sex: Male
  Weight: 24 kg

DRUGS (2)
  1. RITALIN [Suspect]
     Indication: ATTENTION DEFICIT/HYPERACTIVITY DISORDER
     Dosage: 10 MG, BID
  2. RITALIN LA [Suspect]
     Indication: ATTENTION DEFICIT/HYPERACTIVITY DISORDER
     Dosage: 20 MG, UNK
     Route: 048

REACTIONS (5)
  - ALLERGIC SINUSITIS [None]
  - DRUG INEFFECTIVE [None]
  - MIGRAINE [None]
  - NEURON-SPECIFIC ENOLASE INCREASED [None]
  - SOMNOLENCE [None]
